FAERS Safety Report 12890180 (Version 1)
Quarter: 2016Q4

REPORT INFORMATION
  Report Type: Spontaneous
  Country: US (occurrence: US)
  Receive Date: 20161027
  Receipt Date: 20161027
  Transmission Date: 20170207
  Serious: No
  Sender: FDA-Public Use
  Company Number: US-PFIZER INC-2016499405

PATIENT
  Age: 46 Year
  Sex: Male

DRUGS (2)
  1. MORPHINE SULFATE. [Suspect]
     Active Substance: MORPHINE SULFATE
     Dosage: UNK
  2. CARMOL (UREA) [Suspect]
     Active Substance: UREA
     Dosage: UNK

REACTIONS (1)
  - Drug hypersensitivity [Unknown]
